FAERS Safety Report 4564237-3 (Version None)
Quarter: 2005Q1

REPORT INFORMATION
  Report Type: 
  Country: None (occurrence: None)
  Receive Date: 20050126
  Receipt Date: 20050119
  Transmission Date: 20050727
  Serious: Yes (Life-Threatening, Hospitalization)
  Sender: FDA-Public Use
  Company Number: 2005-01-1087

PATIENT
  Age: 17 Month
  Sex: Female

DRUGS (3)
  1. CELESTONE [Suspect]
     Indication: PHARYNGOLARYNGEAL PAIN
     Dosage: 1.1 MG QD ORAL
     Route: 048
     Dates: start: 20041219, end: 20041222
  2. DOLIPRANE ORAL [Suspect]
     Indication: PHARYNGOLARYNGEAL PAIN
     Dosage: ORAL
     Route: 048
     Dates: start: 20041219, end: 20041222
  3. MUCOMYST [Suspect]
     Indication: PHARYNGOLARYNGEAL PAIN
     Dosage: ORAL
     Route: 048
     Dates: start: 20041219, end: 20041222

REACTIONS (5)
  - BACTERIAL INFECTION [None]
  - CONDITION AGGRAVATED [None]
  - CONVULSION [None]
  - SEPTIC SHOCK [None]
  - SKIN DISCOLOURATION [None]
